FAERS Safety Report 7397333-6 (Version None)
Quarter: 2011Q2

REPORT INFORMATION
  Report Type: 
  Country: None (occurrence: None)
  Receive Date: 20110406
  Receipt Date: 20110331
  Transmission Date: 20111010
  Serious: Yes (Other)
  Sender: FDA-Public Use
  Company Number: US-PFIZER INC-2004111653

PATIENT
  Age: 62 Year
  Sex: Male

DRUGS (14)
  1. SIMETHICONE [Concomitant]
     Indication: GASTRIC DISORDER
  2. ZOLOFT [Suspect]
     Indication: PSYCHOTIC DISORDER
     Dosage: 50 MG, 1X/DAY
     Route: 048
  3. HYOSCYAMINE [Suspect]
     Indication: GASTRIC DISORDER
     Dosage: 0.375 MG, UNK
     Route: 065
     Dates: start: 20040701, end: 20041213
  4. ASPIRIN [Concomitant]
  5. ZOLOFT [Suspect]
     Indication: MAJOR DEPRESSION
     Dosage: 25 MG, 1X/DAY
     Route: 048
     Dates: start: 20040729
  6. ZOLOFT [Suspect]
     Dosage: 75 MG, 1X/DAY
     Route: 048
     Dates: start: 20040817
  7. ZOLOFT [Suspect]
     Dosage: 100 MG, 1X/DAY
     Route: 048
     Dates: start: 20040923, end: 20041123
  8. NEXIUM [Concomitant]
     Route: 048
  9. MULTI-VITAMINS [Concomitant]
  10. FAMOTIDINE [Concomitant]
     Route: 065
  11. REGLAN [Suspect]
     Dosage: UNK
     Dates: end: 20040601
  12. DOCUSATE [Concomitant]
  13. METOPROLOL SUCCINATE [Concomitant]
     Route: 048
  14. ATORVASTATIN [Concomitant]
     Route: 048

REACTIONS (1)
  - TARDIVE DYSKINESIA [None]
